FAERS Safety Report 7870876-4 (Version None)
Quarter: 2011Q4

REPORT INFORMATION
  Report Type: 
  Country: None (occurrence: None)
  Receive Date: 20111029
  Receipt Date: 20110218
  Transmission Date: 20120403
  Serious: No
  Sender: FDA-Public Use
  Company Number: US-AMGEN-USASP2011009640

PATIENT
  Age: 53 Year
  Sex: Female
  Weight: 61.224 kg

DRUGS (1)
  1. ENBREL [Suspect]
     Indication: RHEUMATOID ARTHRITIS
     Dosage: 50 MG, QWK
     Route: 058
     Dates: start: 20040101

REACTIONS (4)
  - ASTHMA [None]
  - PYREXIA [None]
  - GASTROINTESTINAL INFECTION [None]
  - DIARRHOEA [None]
